FAERS Safety Report 9735222 (Version 2)
Quarter: 2013Q4

REPORT INFORMATION
  Report Type: Spontaneous
  Country: US (occurrence: US)
  Receive Date: 20131206
  Receipt Date: 20131212
  Transmission Date: 20140711
  Serious: Yes (Death, Hospitalization)
  Sender: FDA-Public Use
  Company Number: US-B.I. PHARMACEUTICALS,INC./RIDGEFIELD-2013-BI-40416BP

PATIENT
  Age: 80 Year
  Sex: Male

DRUGS (2)
  1. PRADAXA [Suspect]
     Indication: ATRIAL FIBRILLATION
     Dosage: 300 MG
     Dates: start: 201311
  2. BETA BLOCKERS [Concomitant]

REACTIONS (4)
  - Pericardial haemorrhage [Fatal]
  - Hepatic failure [Fatal]
  - Renal failure [Fatal]
  - Cardiac tamponade [Fatal]
